FAERS Safety Report 26135340 (Version 1)
Quarter: 2025Q4

REPORT INFORMATION
  Report Type: Spontaneous
  Country: US (occurrence: US)
  Receive Date: 20251209
  Receipt Date: 20251209
  Transmission Date: 20260118
  Serious: No
  Sender: NOVEN
  Company Number: US-NOVEN PHARMACEUTICALS, INC.-2025-NOV-US000868

PATIENT
  Sex: Female
  Weight: 48.073 kg

DRUGS (3)
  1. ESTRADIOL [Suspect]
     Active Substance: ESTRADIOL
     Indication: Menopausal symptoms
     Dosage: 0.1 MG, EVERY 3-4 DAYS ON A TUESDAY/FRIDAY
     Route: 062
     Dates: start: 202503
  2. ESTRADIOL [Suspect]
     Active Substance: ESTRADIOL
     Indication: Off label use
  3. PROGESTERONE [Suspect]
     Active Substance: PROGESTERONE
     Indication: Menopausal symptoms
     Dosage: 200 MG, UNKNOWN
     Route: 065

REACTIONS (3)
  - Thinking abnormal [Not Recovered/Not Resolved]
  - Nasopharyngitis [Not Recovered/Not Resolved]
  - Off label use [Not Recovered/Not Resolved]

NARRATIVE: CASE EVENT DATE: 20250101
